FAERS Safety Report 17235662 (Version 1)
Quarter: 2020Q1

REPORT INFORMATION
  Report Type: Spontaneous
  Country: US (occurrence: US)
  Receive Date: 20200106
  Receipt Date: 20200106
  Transmission Date: 20200409
  Serious: No
  Sender: FDA-Public Use
  Company Number: US-GLAXOSMITHKLINE-US2020000744

PATIENT
  Age: 69 Year
  Sex: Male

DRUGS (1)
  1. ABREVA [Suspect]
     Active Substance: DOCOSANOL
     Indication: ORAL HERPES
     Dosage: UNK (USED FOR 4 DAYS AND 5 TIMES A DAYS)
     Dates: start: 20191229

REACTIONS (2)
  - Ageusia [Unknown]
  - Lip pain [Unknown]

NARRATIVE: CASE EVENT DATE: 20191229
